FAERS Safety Report 6870866-4 (Version None)
Quarter: 2010Q3

REPORT INFORMATION
  Report Type: 
  Country: None (occurrence: None)
  Receive Date: 20100723
  Receipt Date: 20100712
  Transmission Date: 20110219
  Serious: Yes (Hospitalization)
  Sender: FDA-Public Use
  Company Number: PHHY2010AR45726

PATIENT
  Sex: Female

DRUGS (1)
  1. RASILEZ [Suspect]
     Indication: CARDIAC DISORDER
     Dosage: 150 MG, QD
     Route: 048

REACTIONS (2)
  - ARRHYTHMIA [None]
  - PALPITATIONS [None]
